FAERS Safety Report 6569401-X (Version None)
Quarter: 2010Q1

REPORT INFORMATION
  Report Type: 
  Country: None (occurrence: None)
  Receive Date: 20100204
  Receipt Date: 20100129
  Transmission Date: 20100710
  Serious: Yes (Other)
  Sender: FDA-Public Use
  Company Number: US-RB-001997-10

PATIENT
  Age: 50 Year
  Sex: Female

DRUGS (1)
  1. MUCINEX [Suspect]
     Dosage: I TOOK ONE PILL YESTERDAY AND TODAY
     Route: 048
     Dates: start: 20100128

REACTIONS (1)
  - FAECES DISCOLOURED [None]
